FAERS Safety Report 5020013-9 (Version None)
Quarter: 2006Q2

REPORT INFORMATION
  Report Type: 
  Country: None (occurrence: None)
  Receive Date: 20060601
  Receipt Date: 20060523
  Transmission Date: 20061013
  Serious: Yes (Death, Hospitalization, Other)
  Sender: FDA-Public Use
  Company Number: NL-2006-012463

PATIENT
  Age: 77 Year
  Sex: Female

DRUGS (8)
  1. SOTALOL HYDROCHLORIDE [Suspect]
     Indication: ATRIAL FIBRILLATION
     Dosage: 40 MG, 2X/DAY
     Dates: start: 20010101
  2. CO-TRIMOXAZOLE (CO-TRIMOXAZOLE) [Concomitant]
  3. FUROSEMIDE [Concomitant]
  4. AMILORIDE (AMILORIDE) [Concomitant]
  5. HYDROCHLOROTHIAZIDE [Concomitant]
  6. ASPIRIN [Concomitant]
  7. PAROXETINE [Concomitant]
  8. CONTRAST MEDIA [Concomitant]

REACTIONS (21)
  - ARRHYTHMIA [None]
  - ATRIAL FIBRILLATION [None]
  - BLOOD SODIUM DECREASED [None]
  - BRADYCARDIA [None]
  - CARDIAC ASTHMA [None]
  - DEHYDRATION [None]
  - DIZZINESS [None]
  - ELECTROCARDIOGRAM QT PROLONGED [None]
  - FALL [None]
  - FATIGUE [None]
  - FLUID INTAKE REDUCED [None]
  - HAEMOGLOBIN DECREASED [None]
  - HIP FRACTURE [None]
  - HYPERHIDROSIS [None]
  - HYPOKALAEMIA [None]
  - HYPOTENSION [None]
  - RENAL IMPAIRMENT [None]
  - RESPIRATORY FAILURE [None]
  - SINUS BRADYCARDIA [None]
  - URINARY TRACT INFECTION [None]
  - VENTRICULAR ARRHYTHMIA [None]
